FAERS Safety Report 9517562 (Version 1)
Quarter: 2013Q3

REPORT INFORMATION
  Report Type: Spontaneous
  Country: US (occurrence: US)
  Receive Date: 20130911
  Receipt Date: 20130911
  Transmission Date: 20140515
  Serious: Yes (Other)
  Sender: FDA-Public Use
  Company Number: US-JNJFOC-20130900390

PATIENT
  Age: 48 Year
  Sex: Female
  Weight: 158.31 kg

DRUGS (3)
  1. BENADRYL ALLERGY ULTRATAB [Suspect]
     Route: 048
  2. BENADRYL ALLERGY ULTRATAB [Suspect]
     Indication: MULTIPLE ALLERGIES
     Route: 048
  3. VITAMINS NOS [Concomitant]
     Indication: PRODUCT USED FOR UNKNOWN INDICATION
     Route: 065

REACTIONS (1)
  - Coeliac disease [Unknown]
